FAERS Safety Report 7154699-X (Version None)
Quarter: 2010Q4

REPORT INFORMATION
  Report Type: 
  Country: None (occurrence: None)
  Receive Date: 20101214
  Receipt Date: 20091106
  Transmission Date: 20110411
  Serious: No
  Sender: FDA-Public Use
  Company Number: US-AMGEN-QUU373358

PATIENT

DRUGS (2)
  1. ENBREL [Suspect]
     Indication: PSORIATIC ARTHROPATHY
     Dosage: 50 MG, QWK
     Route: 058
  2. ENBREL [Suspect]
     Indication: PSORIASIS

REACTIONS (9)
  - CHILLS [None]
  - HYPERHIDROSIS [None]
  - INFECTED SEBACEOUS CYST [None]
  - OROPHARYNGEAL PAIN [None]
  - PSORIASIS [None]
  - PULMONARY OEDEMA [None]
  - RESPIRATORY TRACT CONGESTION [None]
  - THERAPEUTIC RESPONSE DECREASED [None]
  - UPPER-AIRWAY COUGH SYNDROME [None]
